FAERS Safety Report 13415183 (Version 1)
Quarter: 2017Q2

REPORT INFORMATION
  Report Type: Spontaneous
  Country: KR (occurrence: KR)
  Receive Date: 20170407
  Receipt Date: 20170407
  Transmission Date: 20170830
  Serious: Yes (Other)
  Sender: FDA-Public Use
  Company Number: PHHY2017KR051572

PATIENT
  Age: 43 Year
  Sex: Female

DRUGS (1)
  1. TELBIVUDINE [Suspect]
     Active Substance: TELBIVUDINE
     Indication: HEPATITIS B
     Dosage: 600 MG, QD
     Route: 065

REACTIONS (2)
  - Drug resistance [Unknown]
  - Hepatitis B DNA increased [Unknown]
